FAERS Safety Report 26150015 (Version 1)
Quarter: 2025Q4

REPORT INFORMATION
  Report Type: Spontaneous
  Country: KR (occurrence: KR)
  Receive Date: 20251212
  Receipt Date: 20251212
  Transmission Date: 20260118
  Serious: Yes (Death, Other)
  Sender: MERCK SHARP & DOHME LLC
  Company Number: KR-009507513-2358650

PATIENT
  Age: 63 Year
  Sex: Female

DRUGS (6)
  1. KEYTRUDA [Suspect]
     Active Substance: PEMBROLIZUMAB
     Indication: Invasive breast carcinoma
     Dates: start: 20220916, end: 20230223
  2. KEYTRUDA [Suspect]
     Active Substance: PEMBROLIZUMAB
     Indication: Invasive breast carcinoma
     Dates: start: 2023
  3. PACLITAXEL [Suspect]
     Active Substance: PACLITAXEL
     Indication: Invasive breast carcinoma
     Dates: start: 20220916
  4. CARBOPLATIN [Suspect]
     Active Substance: CARBOPLATIN
     Indication: Invasive breast carcinoma
     Dates: start: 20220916
  5. DOXORUBICIN [Suspect]
     Active Substance: DOXORUBICIN
     Indication: Invasive breast carcinoma
  6. CYCLOPHOSPHAMIDE [Suspect]
     Active Substance: CYCLOPHOSPHAMIDE
     Indication: Invasive breast carcinoma

REACTIONS (9)
  - Death [Fatal]
  - Hyponatraemia [Unknown]
  - Somnolence [Unknown]
  - Status epilepticus [Unknown]
  - Vasculitis [Unknown]
  - Brain oedema [Unknown]
  - Subarachnoid haemorrhage [Unknown]
  - Intracranial aneurysm [Unknown]
  - Aneurysm [Unknown]

NARRATIVE: CASE EVENT DATE: 20230930
